FAERS Safety Report 7808514-9 (Version None)
Quarter: 2011Q4

REPORT INFORMATION
  Report Type: 
  Country: None (occurrence: None)
  Receive Date: 20111006
  Receipt Date: 20110926
  Transmission Date: 20120403
  Serious: Yes (Hospitalization)
  Sender: FDA-Public Use
  Company Number: 1000022724

PATIENT
  Age: 63 Year
  Sex: Male

DRUGS (7)
  1. FENOTEROL/IPRATROPIUM BROMIDE (FENOTEROL, IPRATROPIUM BROMIDE) (FENOTE [Concomitant]
  2. DILTIAZEM [Suspect]
  3. ENALAPRIL MALEATE [Suspect]
     Indication: HYPERTENSION
     Dosage: 20 MG (20 MG, 1 IN 1 D)
  4. ACETYLSALICYLIC ACID SRT [Suspect]
  5. AMINOPHYLLINE (AMINOPHYLLINE) (TABLETS) (AMINOPHYLLINE) [Concomitant]
  6. TIOTROPIUM BROMIDE (TIOTROPIUM) (TIOTROPIUM BROMIDE) [Concomitant]
  7. SALMETEROL/FLUTICASONE PROPIONATE (SALMETEROL, FLUTICASONE PROPIONATE) [Concomitant]

REACTIONS (2)
  - CHOKING [None]
  - ANGIOEDEMA [None]
